FAERS Safety Report 9107215 (Version 6)
Quarter: 2014Q2

REPORT INFORMATION
  Report Type: Spontaneous
  Country: US (occurrence: US)
  Receive Date: 20130221
  Receipt Date: 20140613
  Transmission Date: 20141212
  Serious: Yes (Hospitalization)
  Sender: FDA-Public Use
  Company Number: US-JNJFOC-20121106880

PATIENT
  Age: 37 Year
  Sex: Female
  Weight: 85 kg

DRUGS (10)
  1. EXTRA STRENGTH TYLENOL [Suspect]
     Route: 048
  2. EXTRA STRENGTH TYLENOL [Suspect]
     Indication: PAIN
     Route: 048
     Dates: start: 2010
  3. EXTRA STRENGTH TYLENOL PM [Suspect]
     Indication: PAIN
     Route: 048
  4. TYLENOL ARTHRITIS [Suspect]
     Route: 048
  5. TYLENOL ARTHRITIS [Suspect]
     Indication: PRODUCT USED FOR UNKNOWN INDICATION
     Route: 048
     Dates: start: 2010
  6. OXYCODONE [Suspect]
     Indication: PRODUCT USED FOR UNKNOWN INDICATION
     Route: 065
  7. ONDANSETRON [Concomitant]
     Indication: PRODUCT USED FOR UNKNOWN INDICATION
     Route: 065
  8. PENICILLIN [Concomitant]
     Indication: PRODUCT USED FOR UNKNOWN INDICATION
     Dates: start: 20101112
  9. IBUPROFEN [Concomitant]
     Indication: PAIN
     Route: 048
     Dates: start: 2010
  10. NICOTROL [Concomitant]
     Indication: TOBACCO USER
     Route: 062

REACTIONS (8)
  - Acute lung injury [Recovering/Resolving]
  - Acute respiratory distress syndrome [Recovering/Resolving]
  - Hepatic cirrhosis [Recovering/Resolving]
  - Hypoproteinaemia [Recovering/Resolving]
  - Hepatitis [Recovering/Resolving]
  - Tachycardia [Recovering/Resolving]
  - Acute hepatic failure [Recovering/Resolving]
  - Accidental overdose [Recovering/Resolving]
